FAERS Safety Report 5001336-6 (Version None)
Quarter: 2006Q2

REPORT INFORMATION
  Report Type: 
  Country: None (occurrence: None)
  Receive Date: 20060512
  Receipt Date: 20050218
  Transmission Date: 20061013
  Serious: Yes (Hospitalization)
  Sender: FDA-Public Use
  Company Number: US-MERCK-0502USA02990

PATIENT
  Age: 44 Year
  Sex: Male
  Weight: 121 kg

DRUGS (2)
  1. VIOXX [Suspect]
     Indication: BACK PAIN
     Route: 048
     Dates: start: 20000508, end: 20040929
  2. PREVACID [Concomitant]
     Route: 065

REACTIONS (12)
  - ANGINA UNSTABLE [None]
  - CHRONIC OBSTRUCTIVE PULMONARY DISEASE [None]
  - CORONARY ARTERY DISEASE [None]
  - DIABETES MELLITUS [None]
  - GLUCOSE TOLERANCE IMPAIRED [None]
  - HYPERTENSION [None]
  - LIVER FUNCTION TEST ABNORMAL [None]
  - MYOCARDIAL INFARCTION [None]
  - POLYCYTHAEMIA [None]
  - SLEEP APNOEA SYNDROME [None]
  - UPPER LIMB FRACTURE [None]
  - VENTRICULAR TACHYCARDIA [None]
